FAERS Safety Report 5892643-3 (Version None)
Quarter: 2008Q3

REPORT INFORMATION
  Report Type: 
  Country: None (occurrence: None)
  Receive Date: 20080919
  Receipt Date: 20080919
  Transmission Date: 20090109
  Serious: No
  Sender: FDA-Public Use
  Company Number: None

PATIENT
  Sex: Female
  Weight: 51.2565 kg

DRUGS (3)
  1. VIGAMOX [Suspect]
     Indication: CONJUNCTIVITIS BACTERIAL
     Dosage: ONE DROP TID TOPICAL
     Route: 061
     Dates: start: 20080829, end: 20080903
  2. VIGAMOX [Suspect]
     Indication: CONJUNCTIVITIS BACTERIAL
     Dosage: ONE DROP TID TOPICAL
     Route: 061
     Dates: start: 20080905
  3. FML EYE DROPS [Concomitant]

REACTIONS (7)
  - ARTHRALGIA [None]
  - BONE PAIN [None]
  - CHEST PAIN [None]
  - DYSPNOEA [None]
  - MYALGIA [None]
  - PAIN IN EXTREMITY [None]
  - PARAESTHESIA [None]
